FAERS Safety Report 4823531-9 (Version None)
Quarter: 2005Q4

REPORT INFORMATION
  Report Type: 
  Country: None (occurrence: None)
  Receive Date: 20051109
  Receipt Date: 20051103
  Transmission Date: 20060501
  Serious: Yes (Other)
  Sender: FDA-Public Use
  Company Number: US-ABBOTT-05P-163-0316394-00

PATIENT
  Sex: Male
  Weight: 90.8 kg

DRUGS (1)
  1. SYNTHROID [Suspect]
     Indication: HYPOTHYROIDISM
     Route: 048
     Dates: start: 19680101

REACTIONS (3)
  - BLOOD PRESSURE INCREASED [None]
  - MUSCLE TWITCHING [None]
  - PARKINSON'S DISEASE [None]
